FAERS Safety Report 7332435-1 (Version None)
Quarter: 2011Q1

REPORT INFORMATION
  Report Type: 
  Country: None (occurrence: None)
  Receive Date: 20110222
  Receipt Date: 20110209
  Transmission Date: 20110831
  Serious: Yes (Hospitalization)
  Sender: FDA-Public Use
  Company Number: 2011MA001230

PATIENT
  Age: 52 Year
  Sex: Male

DRUGS (1)
  1. DICLOFENAC SODIUM [Suspect]
     Indication: BACK PAIN
     Dosage: 75 MG;QD;IM
     Route: 030

REACTIONS (6)
  - SKIN NECROSIS [None]
  - PAIN [None]
  - STAPHYLOCOCCAL INFECTION [None]
  - WOUND INFECTION [None]
  - RASH ERYTHEMATOUS [None]
  - WOUND DEHISCENCE [None]
